FAERS Safety Report 15451328 (Version 1)
Quarter: 2018Q4

REPORT INFORMATION
  Report Type: Spontaneous
  Country: ES (occurrence: ES)
  Receive Date: 20181001
  Receipt Date: 20181001
  Transmission Date: 20190204
  Serious: Yes (Other)
  Sender: FDA-Public Use
  Company Number: ES-MYLANLABS-2018M1070509

PATIENT
  Age: 49 Year
  Sex: Female

DRUGS (2)
  1. EVEROLIMUS. [Suspect]
     Active Substance: EVEROLIMUS
     Indication: BREAST CANCER
     Dosage: 10 MG/24 H
     Route: 065
  2. EXEMESTANE. [Suspect]
     Active Substance: EXEMESTANE
     Indication: BREAST CANCER
     Dosage: 25 MG/24 H
     Route: 065

REACTIONS (5)
  - Asthenia [Unknown]
  - Mucosal inflammation [Unknown]
  - Affect lability [Unknown]
  - Malignant neoplasm progression [Unknown]
  - Metastases to liver [Unknown]
